FAERS Safety Report 5221330-X (Version None)
Quarter: 2007Q1

REPORT INFORMATION
  Report Type: 
  Country: None (occurrence: None)
  Receive Date: 20070126
  Receipt Date: 20070116
  Transmission Date: 20070707
  Serious: Yes (Hospitalization, Other)
  Sender: FDA-Public Use
  Company Number: US-PFIZER INC-2006155347

PATIENT
  Sex: Male
  Weight: 135 kg

DRUGS (6)
  1. ZITHROMAX [Suspect]
     Indication: PNEUMONIA
     Route: 042
  2. ZITHROMAX [Suspect]
     Indication: PNEUMONIA
     Dosage: DAILY DOSE:500MG
     Route: 048
  3. PREDNISONE [Concomitant]
  4. DILTIAZEM HCL [Concomitant]
  5. AMIODARONE HCL [Concomitant]
  6. LEVOFLOXACIN [Concomitant]

REACTIONS (2)
  - DEAFNESS [None]
  - HOSPITALISATION [None]
